FAERS Safety Report 9502079 (Version 2)
Quarter: 2013Q3

REPORT INFORMATION
  Report Type: Spontaneous
  Country: US (occurrence: US)
  Receive Date: 20130905
  Receipt Date: 20130905
  Transmission Date: 20140515
  Serious: Yes (Hospitalization, Disabling, Other)
  Sender: FDA-Public Use
  Company Number: US-009507513-1111USA02472

PATIENT
  Sex: Female

DRUGS (3)
  1. FOSAMAX [Suspect]
     Indication: OSTEOPOROSIS
     Dosage: 70 MG, QW
     Route: 048
     Dates: start: 20030105, end: 2009
  2. FOSAMAX [Suspect]
     Dosage: 70 MG, QW
     Route: 048
     Dates: start: 20030105, end: 20120401
  3. FOSAMAX [Suspect]
     Dosage: 70 MG, UNK
     Route: 048
     Dates: start: 20080916, end: 20100320

REACTIONS (33)
  - Intervertebral disc protrusion [Unknown]
  - Adverse event [Not Recovered/Not Resolved]
  - Adverse event [Unknown]
  - Osteonecrosis of jaw [Recovered/Resolved]
  - Hypersensitivity [Unknown]
  - Atrophic vulvovaginitis [Unknown]
  - Intervertebral disc protrusion [Unknown]
  - Road traffic accident [Unknown]
  - Fistula [Unknown]
  - Tooth abscess [Unknown]
  - Dental caries [Unknown]
  - Tooth fracture [Unknown]
  - Restless legs syndrome [Unknown]
  - Insomnia [Unknown]
  - Eye infection [Unknown]
  - Hypothyroidism [Unknown]
  - Eye disorder [Unknown]
  - Hypertension [Unknown]
  - Neck injury [Unknown]
  - Tooth disorder [Unknown]
  - Anxiety [Unknown]
  - Rheumatoid arthritis [Unknown]
  - Gingival disorder [Unknown]
  - Gingival bleeding [Unknown]
  - Sensitivity of teeth [Unknown]
  - Tooth disorder [Unknown]
  - Tooth disorder [Unknown]
  - Tooth disorder [Unknown]
  - Tooth disorder [Unknown]
  - Tooth disorder [Unknown]
  - Osteomyelitis [Unknown]
  - Back pain [Unknown]
  - Headache [Unknown]
